FAERS Safety Report 4349106-6 (Version None)
Quarter: 2004Q2

REPORT INFORMATION
  Report Type: 
  Country: None (occurrence: None)
  Receive Date: 20040427
  Receipt Date: 20040427
  Transmission Date: 20050107
  Serious: Yes (Other)
  Sender: FDA-Public Use
  Company Number: None

PATIENT
  Sex: Male

DRUGS (10)
  1. LIDOCAINE AND EPINEPHRINE [Suspect]
     Dates: start: 20040120, end: 20040120
  2. CLOAZEPAM [Concomitant]
  3. DICLOFENAC [Concomitant]
  4. FLUOXETINE [Concomitant]
  5. GEMFIBROZIL [Concomitant]
  6. IBUPROFEN [Concomitant]
  7. MISOPROSTOL [Concomitant]
  8. RABEPRAZOLE SODIUM [Concomitant]
  9. LOVASTATIN [Concomitant]
  10. LORATADINE [Concomitant]

REACTIONS (1)
  - PALPITATIONS [None]
